FAERS Safety Report 10287313 (Version 2)
Quarter: 2014Q3

REPORT INFORMATION
  Report Type: Spontaneous
  Country: FR (occurrence: FR)
  Receive Date: 20140709
  Receipt Date: 20140709
  Transmission Date: 20150326
  Serious: Yes (Other)
  Sender: FDA-Public Use
  Company Number: FR-BRISTOL-MYERS SQUIBB COMPANY-20653788

PATIENT
  Age: 67 Year
  Sex: Male

DRUGS (2)
  1. ELIQUIS [Suspect]
     Active Substance: APIXABAN
     Dosage: TABLET
     Dates: start: 20140405, end: 20140416
  2. AMIODARONE [Concomitant]
     Active Substance: AMIODARONE
     Dosage: TABLET

REACTIONS (1)
  - Muscle spasms [Recovered/Resolved]
